FAERS Safety Report 8288213-2 (Version None)
Quarter: 2012Q2

REPORT INFORMATION
  Report Type: 
  Country: None (occurrence: None)
  Receive Date: 20120416
  Receipt Date: 20120410
  Transmission Date: 20120825
  Serious: Yes (Hospitalization, Other)
  Sender: FDA-Public Use
  Company Number: US-ABBOTT-12P-163-0916442-00

PATIENT
  Sex: Female
  Weight: 61.29 kg

DRUGS (13)
  1. PLAQUENIL [Concomitant]
     Indication: RHEUMATOID ARTHRITIS
  2. METHOTREXATE [Suspect]
     Indication: RHEUMATOID ARTHRITIS
  3. VICODIN [Suspect]
     Indication: PAIN
     Dates: start: 20100501, end: 20100501
  4. RANITIDINE [Concomitant]
     Indication: GASTRIC DISORDER
  5. HUMIRA [Suspect]
     Indication: RHEUMATOID ARTHRITIS
     Dates: start: 20120201
  6. CELEBREX [Concomitant]
     Indication: RHEUMATOID ARTHRITIS
  7. VITAMIN B-12 [Concomitant]
     Indication: VITAMIN SUPPLEMENTATION
     Dosage: MONTHLY
     Route: 050
  8. HYDROXYCHLOROQUINE SULFATE [Concomitant]
     Indication: RHEUMATOID ARTHRITIS
  9. TRAMADOL HCL [Concomitant]
     Indication: RHEUMATOID ARTHRITIS
  10. FLONASE [Concomitant]
     Indication: HYPERSENSITIVITY
  11. FOLIC ACID [Concomitant]
     Indication: VITAMIN SUPPLEMENTATION
  12. HUMIRA [Suspect]
     Indication: RHEUMATOID ARTHRITIS
     Dates: start: 20050101, end: 20120201
  13. ESTROGEN [Concomitant]
     Indication: HORMONE REPLACEMENT THERAPY

REACTIONS (11)
  - BLISTER [None]
  - NECROTISING FASCIITIS STREPTOCOCCAL [None]
  - INFECTION [None]
  - PARAESTHESIA [None]
  - DRUG INEFFECTIVE [None]
  - INJECTION SITE PAIN [None]
  - PAIN IN EXTREMITY [None]
  - OEDEMA PERIPHERAL [None]
  - LOCALISED INFECTION [None]
  - PAIN [None]
  - SKIN DISCOLOURATION [None]
